FAERS Safety Report 25644010 (Version 1)
Quarter: 2025Q3

REPORT INFORMATION
  Report Type: Spontaneous
  Country: EU (occurrence: EU)
  Receive Date: 20250805
  Receipt Date: 20250805
  Transmission Date: 20251020
  Serious: Yes (Hospitalization)
  Sender: RANBAXY
  Company Number: EU-SUN PHARMACEUTICAL INDUSTRIES LTD-2025RR-520793

PATIENT
  Age: 55 Year
  Sex: Male

DRUGS (3)
  1. VALACYCLOVIR [Suspect]
     Active Substance: VALACYCLOVIR HYDROCHLORIDE
     Indication: Prophylaxis
     Dosage: 500 MILLIGRAM, DAILY
     Route: 048
     Dates: start: 20250308, end: 20250314
  2. PREVYMIS [Interacting]
     Active Substance: LETERMOVIR
     Indication: Prophylaxis
     Dosage: 480 MILLIGRAM, DAILY
     Route: 048
     Dates: start: 20250306, end: 20250314
  3. ROSUVASTATIN [Interacting]
     Active Substance: ROSUVASTATIN
     Indication: Dyslipidaemia
     Dosage: LC
     Route: 048
     Dates: end: 20250312

REACTIONS (2)
  - Hepatic cytolysis [Recovering/Resolving]
  - Drug interaction [Recovering/Resolving]

NARRATIVE: CASE EVENT DATE: 20250308
